FAERS Safety Report 10204109 (Version 1)
Quarter: 2014Q2

REPORT INFORMATION
  Report Type: Spontaneous
  Country: US (occurrence: US)
  Receive Date: 20140529
  Receipt Date: 20140529
  Transmission Date: 20141212
  Serious: Yes (Hospitalization, Other)
  Sender: FDA-Public Use
  Company Number: US-ACTAVIS-2014-11369

PATIENT
  Age: 14 Year
  Sex: Male

DRUGS (2)
  1. PIPERACILLIN-TAZOBACTAM (UNKNOWN) [Suspect]
     Indication: PYREXIA
     Dosage: UNK
     Route: 065
  2. VANCOMYCIN HCL (WATSON LABORATORIES) [Suspect]
     Indication: PYREXIA
     Dosage: UNK
     Route: 065

REACTIONS (1)
  - Renal failure acute [Recovering/Resolving]
